FAERS Safety Report 5605481-3 (Version None)
Quarter: 2008Q1

REPORT INFORMATION
  Report Type: 
  Country: None (occurrence: None)
  Receive Date: 20080129
  Receipt Date: 20080117
  Transmission Date: 20080703
  Serious: Yes (Other)
  Sender: FDA-Public Use
  Company Number: US-BRISTOL-MYERS SQUIBB COMPANY-14046775

PATIENT
  Age: 68 Year
  Sex: Male

DRUGS (9)
  1. LISINOPRIL [Suspect]
     Dosage: WAS TAKING LISINOPRIL FROM PAST 10 YEARS.
     Route: 065
     Dates: end: 20071005
  2. GLUCOVANCE [Suspect]
     Route: 065
  3. ATENOLOL [Suspect]
  4. PLAVIX [Suspect]
     Indication: CARDIAC DISORDER
     Route: 048
     Dates: start: 20070901, end: 20071005
  5. PLAVIX [Suspect]
     Indication: CORONARY ARTERIAL STENT INSERTION
     Route: 048
     Dates: start: 20070901, end: 20071005
  6. ASPIRIN [Suspect]
     Route: 065
  7. LIPITOR [Suspect]
     Route: 065
  8. NORVASC [Suspect]
     Route: 065
  9. HYDROCHLOROTHIAZIDE [Suspect]
     Route: 065

REACTIONS (4)
  - ANGIOEDEMA [None]
  - DRUG HYPERSENSITIVITY [None]
  - SWELLING FACE [None]
  - SWOLLEN TONGUE [None]
